FAERS Safety Report 5653848-X (Version None)
Quarter: 2008Q1

REPORT INFORMATION
  Report Type: 
  Country: None (occurrence: None)
  Receive Date: 20080306
  Receipt Date: 20080225
  Transmission Date: 20080703
  Serious: Yes (Hospitalization)
  Sender: FDA-Public Use
  Company Number: US-ELI_LILLY_AND_COMPANY-US_981113194

PATIENT
  Age: 54 Year
  Sex: Female

DRUGS (4)
  1. ZYPREXA [Suspect]
     Indication: BIPOLAR DISORDER
     Dosage: 350 MG, DAILY (1/D)
     Route: 048
  2. ALCOHOL [Concomitant]
     Dosage: UNK, UNKNOWN
     Route: 048
  3. VALPROIC ACID [Concomitant]
     Dosage: UNK, UNKNOWN
     Route: 048
  4. CLONAZEPAM [Concomitant]
     Dosage: 70 MG, UNK

REACTIONS (6)
  - DEPRESSED LEVEL OF CONSCIOUSNESS [None]
  - DRUG TOXICITY [None]
  - DYSARTHRIA [None]
  - MIOSIS [None]
  - OVERDOSE [None]
  - SUICIDE ATTEMPT [None]
